FAERS Safety Report 25498624 (Version 1)
Quarter: 2025Q3

REPORT INFORMATION
  Report Type: Spontaneous
  Country: TH (occurrence: TH)
  Receive Date: 20250701
  Receipt Date: 20250701
  Transmission Date: 20251020
  Serious: Yes (Other)
  Sender: ROCHE
  Company Number: TH-ROCHE-10000320018

PATIENT
  Age: 59 Year
  Sex: Female

DRUGS (16)
  1. TRASTUZUMAB [Suspect]
     Active Substance: TRASTUZUMAB
     Indication: HER2 positive breast cancer
     Route: 065
     Dates: start: 201910, end: 202006
  2. TRASTUZUMAB [Suspect]
     Active Substance: TRASTUZUMAB
     Route: 065
     Dates: start: 202109, end: 202111
  3. TRASTUZUMAB [Suspect]
     Active Substance: TRASTUZUMAB
     Route: 065
     Dates: start: 202112, end: 202206
  4. PERTUZUMAB [Suspect]
     Active Substance: PERTUZUMAB
     Indication: HER2 positive breast cancer
     Route: 065
     Dates: start: 201910, end: 202006
  5. PERTUZUMAB [Suspect]
     Active Substance: PERTUZUMAB
     Route: 065
     Dates: start: 202112, end: 202206
  6. TRASTUZUMAB EMTANSINE [Suspect]
     Active Substance: TRASTUZUMAB EMTANSINE
     Indication: HER2 positive breast cancer
     Route: 065
     Dates: end: 202102
  7. TRASTUZUMAB EMTANSINE [Suspect]
     Active Substance: TRASTUZUMAB EMTANSINE
     Route: 065
     Dates: start: 202105, end: 202109
  8. TAXOTERE [Suspect]
     Active Substance: DOCETAXEL
     Indication: HER2 positive breast cancer
     Route: 065
     Dates: start: 201910, end: 202006
  9. TYKERB [Suspect]
     Active Substance: LAPATINIB DITOSYLATE
     Indication: HER2 positive breast cancer
     Route: 065
     Dates: start: 202007, end: 202010
  10. TYKERB [Suspect]
     Active Substance: LAPATINIB DITOSYLATE
     Route: 065
     Dates: start: 202103, end: 202105
  11. TYKERB [Suspect]
     Active Substance: LAPATINIB DITOSYLATE
     Route: 065
     Dates: start: 202109, end: 202111
  12. ERIBULIN [Suspect]
     Active Substance: ERIBULIN
     Indication: HER2 positive breast cancer
     Route: 065
     Dates: end: 202206
  13. ARIMIDEX [Suspect]
     Active Substance: ANASTROZOLE
     Indication: HER2 positive breast cancer
     Route: 065
     Dates: start: 202007, end: 202010
  14. FEMARA [Suspect]
     Active Substance: LETROZOLE
     Indication: HER2 positive breast cancer
     Route: 065
     Dates: end: 202105
  15. AROMASIN [Suspect]
     Active Substance: EXEMESTANE
     Indication: HER2 positive breast cancer
     Route: 065
     Dates: end: 202111
  16. XGEVA [Concomitant]
     Active Substance: DENOSUMAB
     Route: 058

REACTIONS (14)
  - Oedema [Unknown]
  - Disease progression [Unknown]
  - Decreased appetite [Unknown]
  - Constipation [Unknown]
  - Metabolic disorder [Unknown]
  - Hypoaesthesia [Unknown]
  - Fluid retention [Unknown]
  - Metastases to central nervous system [Unknown]
  - Skin lesion [Unknown]
  - Neoplasm progression [Unknown]
  - Lymphadenopathy [Unknown]
  - Skin mass [Unknown]
  - Invasive ductal breast carcinoma [Unknown]
  - Therapy partial responder [Unknown]

NARRATIVE: CASE EVENT DATE: 20200701
